FAERS Safety Report 5736700-0 (Version None)
Quarter: 2008Q2

REPORT INFORMATION
  Report Type: 
  Country: None (occurrence: None)
  Receive Date: 20080513
  Receipt Date: 20080502
  Transmission Date: 20081010
  Serious: Yes (Death, Life-Threatening)
  Sender: FDA-Public Use
  Company Number: GB-PFIZER INC-2008039091

PATIENT
  Age: 77 Year
  Sex: Male

DRUGS (2)
  1. TRANEXAMIC ACID (IV) [Suspect]
     Indication: POST PROCEDURAL HAEMORRHAGE
  2. EPTACOG ALFA [Suspect]
     Indication: POST PROCEDURAL HAEMORRHAGE
     Route: 048

REACTIONS (1)
  - CEREBRAL INFARCTION [None]
